FAERS Safety Report 7226921-2 (Version None)
Quarter: 2011Q1

REPORT INFORMATION
  Report Type: 
  Country: None (occurrence: None)
  Receive Date: 20110114
  Receipt Date: 20110104
  Transmission Date: 20110831
  Serious: Yes (Hospitalization)
  Sender: FDA-Public Use
  Company Number: US-ELI_LILLY_AND_COMPANY-US201004006437

PATIENT
  Sex: Female

DRUGS (6)
  1. LEXAPRO [Concomitant]
     Dosage: UNK, UNKNOWN
     Route: 065
  2. AMANTADINE [Concomitant]
     Dosage: 100 MG, UNKNOWN
     Route: 065
  3. FORTEO [Suspect]
     Dosage: 20 UG, DAILY (1/D)
  4. CRESTOR [Concomitant]
     Dosage: UNK, UNKNOWN
     Route: 065
  5. PRAMIPEXOLE [Concomitant]
     Dosage: 0.125 MG, UNKNOWN
     Route: 065
  6. FORTEO [Suspect]
     Indication: OSTEOPOROSIS
     Dosage: 20 UG, DAILY (1/D)
     Dates: start: 20100330

REACTIONS (9)
  - BRAIN NEOPLASM [None]
  - MEMORY IMPAIRMENT [None]
  - INJECTION SITE PAIN [None]
  - INJECTION SITE HAEMATOMA [None]
  - MUSCLE SPASMS [None]
  - URINE ODOUR ABNORMAL [None]
  - NEURALGIA [None]
  - VISION BLURRED [None]
  - SKIN ODOUR ABNORMAL [None]
